FAERS Safety Report 10014726 (Version 5)
Quarter: 2014Q3

REPORT INFORMATION
  Report Type: Spontaneous
  Country: CN (occurrence: CN)
  Receive Date: 20140317
  Receipt Date: 20140721
  Transmission Date: 20150326
  Serious: Yes (Other)
  Sender: FDA-Public Use
  Company Number: PHHY2014CN002379

PATIENT
  Age: 61 Year
  Sex: Female

DRUGS (3)
  1. CO-DIOVAN [Suspect]
     Active Substance: HYDROCHLOROTHIAZIDE\VALSARTAN
     Indication: HYPERTENSION
     Dosage: 1 DF (VALS 80MG, HCTZ 12.5MG) A DAY
     Route: 048
     Dates: start: 20131114, end: 20131117
  2. CO-DIOVAN [Suspect]
     Active Substance: HYDROCHLOROTHIAZIDE\VALSARTAN
     Dosage: 1 DF (VALS 80MG, HCTZ 12.5MG) A DAY
     Route: 048
     Dates: start: 20131230, end: 20140101
  3. CO-DIOVAN [Suspect]
     Active Substance: HYDROCHLOROTHIAZIDE\VALSARTAN
     Dosage: 0.5 DF  (VALS 80MG, HCTZ 12.5MG)
     Dates: start: 20131117, end: 20131230

REACTIONS (25)
  - Corneal reflex decreased [Unknown]
  - Visual acuity reduced [Unknown]
  - Dizziness [Unknown]
  - Optic nerve disorder [Unknown]
  - Intraocular pressure increased [Not Recovered/Not Resolved]
  - Urine output decreased [Unknown]
  - Abdominal pain upper [Unknown]
  - Wrong technique in drug usage process [Not Recovered/Not Resolved]
  - Headache [Unknown]
  - Vision blurred [Unknown]
  - Retinal detachment [Unknown]
  - Visual impairment [Unknown]
  - Insomnia [Unknown]
  - Ocular discomfort [Unknown]
  - Eye pain [Unknown]
  - Nausea [Unknown]
  - Open angle glaucoma [Not Recovered/Not Resolved]
  - Corneal diameter decreased [Unknown]
  - Vitreous opacities [Unknown]
  - Discomfort [Unknown]
  - Weight decreased [Unknown]
  - Asthenia [Recovering/Resolving]
  - Oliguria [Unknown]
  - Face oedema [Unknown]
  - Drug ineffective [Not Recovered/Not Resolved]

NARRATIVE: CASE EVENT DATE: 20131117
